FAERS Safety Report 18501102 (Version 6)
Quarter: 2022Q3

REPORT INFORMATION
  Report Type: Spontaneous
  Country: CN (occurrence: CN)
  Receive Date: 20201113
  Receipt Date: 20220708
  Transmission Date: 20221027
  Serious: Yes (Death, Other)
  Sender: FDA-Public Use
  Company Number: CN-GLAXOSMITHKLINE-CN2020223930

PATIENT

DRUGS (2)
  1. VOLTAREN [Suspect]
     Active Substance: DICLOFENAC SODIUM
     Indication: Pain
     Dosage: 1 DF, BID
     Route: 048
     Dates: start: 2020, end: 20201004
  2. FLURBIPROFEN CATAPLASMS [Concomitant]
     Indication: Product used for unknown indication
     Dosage: UNK
     Dates: start: 202009, end: 20201004

REACTIONS (7)
  - Multiple organ dysfunction syndrome [Fatal]
  - Oral mucosal eruption [Unknown]
  - Cheilitis [Unknown]
  - Oral pruritus [Unknown]
  - Lip pruritus [Unknown]
  - Oral mucosal erythema [Unknown]
  - Lip erythema [Unknown]

NARRATIVE: CASE EVENT DATE: 20200930
